FAERS Safety Report 23873573 (Version 1)
Quarter: 2024Q2

REPORT INFORMATION
  Report Type: Spontaneous
  Country: US (occurrence: US)
  Receive Date: 20240520
  Receipt Date: 20240520
  Transmission Date: 20240716
  Serious: No
  Sender: FDA-Public Use
  Company Number: US-Stemline Therapeutics, Inc.-2024ST000997

PATIENT
  Age: 70 Year
  Sex: Female
  Weight: 40.86 kg

DRUGS (2)
  1. ORSERDU [Suspect]
     Active Substance: ELACESTRANT
     Indication: Breast cancer
     Dosage: 345 MG, ONCE A DAY
     Route: 048
     Dates: start: 20240111
  2. ORSERDU [Suspect]
     Active Substance: ELACESTRANT
     Dosage: 345 MG, ONCE A DAY
     Route: 048

REACTIONS (2)
  - Vomiting [Recovered/Resolved]
  - Abdominal discomfort [Recovered/Resolved]

NARRATIVE: CASE EVENT DATE: 20240112
